FAERS Safety Report 24161988 (Version 2)
Quarter: 2024Q3

REPORT INFORMATION
  Report Type: Spontaneous
  Country: GB (occurrence: GB)
  Receive Date: 20240801
  Receipt Date: 20240822
  Transmission Date: 20241016
  Serious: Yes (Life-Threatening, Hospitalization)
  Sender: UCB
  Company Number: GB-UCBSA-2024038337

PATIENT
  Sex: Male

DRUGS (1)
  1. BRIVIACT [Suspect]
     Active Substance: BRIVARACETAM
     Indication: Product used for unknown indication
     Dosage: UNK

REACTIONS (3)
  - Hospitalisation [Not Recovered/Not Resolved]
  - General physical health deterioration [Unknown]
  - Product availability issue [Unknown]
